FAERS Safety Report 24863914 (Version 1)
Quarter: 2025Q1

REPORT INFORMATION
  Report Type: Spontaneous
  Country: US (occurrence: US)
  Receive Date: 20250120
  Receipt Date: 20250120
  Transmission Date: 20250409
  Serious: No
  Sender: ABBVIE
  Company Number: US-ABBVIE-6095522

PATIENT
  Sex: Female

DRUGS (3)
  1. PRED MILD [Suspect]
     Active Substance: PREDNISOLONE ACETATE
     Indication: Glaucoma
     Route: 047
     Dates: start: 2013
  2. PRED MILD [Suspect]
     Active Substance: PREDNISOLONE ACETATE
     Indication: Uveitis
  3. PRED MILD [Suspect]
     Active Substance: PREDNISOLONE ACETATE
     Indication: Eye disorder

REACTIONS (1)
  - Off label use [Unknown]
